FAERS Safety Report 9904638 (Version 1)
Quarter: 2014Q1

REPORT INFORMATION
  Report Type: Spontaneous
  Country: CA (occurrence: CA)
  Receive Date: 20140218
  Receipt Date: 20140218
  Transmission Date: 20141002
  Serious: Yes (Other)
  Sender: FDA-Public Use
  Company Number: CA-ASTELLAS-2014US001462

PATIENT
  Sex: Male

DRUGS (2)
  1. ADVAGRAF [Suspect]
     Indication: RENAL TRANSPLANT
     Dosage: 7 MG, UNKNOWN/D
     Route: 048
  2. ADVAGRAF [Suspect]
     Indication: LIVER TRANSPLANT

REACTIONS (1)
  - Transplant failure [Unknown]
